FAERS Safety Report 9580503 (Version 1)
Quarter: 2013Q4

REPORT INFORMATION
  Report Type: Spontaneous
  Country: US (occurrence: US)
  Receive Date: 20131002
  Receipt Date: 20131002
  Transmission Date: 20140711
  Serious: Yes (Disabling, Other)
  Sender: FDA-Public Use
  Company Number: US-SA-2013SA095673

PATIENT
  Sex: Female

DRUGS (1)
  1. NASACORT AQ [Suspect]
     Indication: EAR DISORDER
     Route: 065

REACTIONS (4)
  - Disability [Unknown]
  - Walking aid user [Unknown]
  - Coeliac disease [Unknown]
  - Hypoaesthesia [Unknown]
